FAERS Safety Report 8580681-1 (Version None)
Quarter: 2012Q3

REPORT INFORMATION
  Report Type: 
  Country: None (occurrence: None)
  Receive Date: 20120809
  Receipt Date: 20120731
  Transmission Date: 20120928
  Serious: Yes (Hospitalization)
  Sender: FDA-Public Use
  Company Number: US-BIOGENIDEC-2012BI027775

PATIENT
  Age: 26 Year
  Sex: Male

DRUGS (3)
  1. GILENYA [Concomitant]
     Dates: start: 20120301, end: 20120501
  2. TYSABRI [Suspect]
     Indication: MULTIPLE SCLEROSIS
     Route: 042
     Dates: start: 20080314, end: 20111130
  3. TYSABRI [Suspect]
     Route: 042
     Dates: start: 20120605

REACTIONS (2)
  - MULTIPLE SCLEROSIS RELAPSE [None]
  - FALL [None]
